FAERS Safety Report 9852327 (Version 1)
Quarter: 2014Q1

REPORT INFORMATION
  Report Type: Spontaneous
  Country: US (occurrence: US)
  Receive Date: 20140129
  Receipt Date: 20140129
  Transmission Date: 20141002
  Serious: No
  Sender: FDA-Public Use
  Company Number: US-UPSHER-SMITH LABORATORIES, INC.-13003431

PATIENT
  Age: 80 Year
  Sex: Female

DRUGS (4)
  1. AMANTADINE HYDROCHLORIDE [Suspect]
     Indication: LETHARGY
     Dosage: 100 MG, BID
     Route: 048
     Dates: start: 201307, end: 201309
  2. AMANTADINE HYDROCHLORIDE [Suspect]
     Dosage: 100 MG, BID
     Route: 048
     Dates: start: 201309
  3. COUMADIN                           /00014802/ [Concomitant]
     Dosage: UNK
  4. CARDIZEM                           /00489701/ [Concomitant]
     Dosage: UNK

REACTIONS (1)
  - Hallucination, visual [Not Recovered/Not Resolved]
